FAERS Safety Report 5498678-7 (Version None)
Quarter: 2007Q4

REPORT INFORMATION
  Report Type: 
  Country: None (occurrence: None)
  Receive Date: 20071024
  Receipt Date: 20071024
  Transmission Date: 20080405
  Serious: Yes (Hospitalization)
  Sender: FDA-Public Use
  Company Number: None

PATIENT
  Age: 76 Year
  Sex: Female
  Weight: 102 kg

DRUGS (3)
  1. COUMADIN [Suspect]
     Indication: ATRIAL FIBRILLATION
     Dosage: PO
     Route: 048
  2. ANTIBIOTICS - UNKNOWN [Suspect]
     Indication: CELLULITIS
  3. ANTIBIOTICS - UNKNOWN [Suspect]
     Indication: CLOSTRIDIAL INFECTION

REACTIONS (8)
  - CELLULITIS [None]
  - DIARRHOEA [None]
  - DRUG INTERACTION [None]
  - HAEMATOCHEZIA [None]
  - HAEMOGLOBIN DECREASED [None]
  - INFECTION [None]
  - INTERNATIONAL NORMALISED RATIO INCREASED [None]
  - ORAL INTAKE REDUCED [None]
